FAERS Safety Report 21711316 (Version 2)
Quarter: 2022Q4

REPORT INFORMATION
  Report Type: Report from Study
  Country: US (occurrence: US)
  Receive Date: 20221212
  Receipt Date: 20221213
  Transmission Date: 20230113
  Serious: No
  Sender: FDA-Public Use
  Company Number: US-002147023-NVSC2022US284894

PATIENT
  Sex: Female

DRUGS (1)
  1. PROMACTA [Suspect]
     Active Substance: ELTROMBOPAG OLAMINE
     Indication: Immune thrombocytopenia
     Dosage: UNK, QOD
     Route: 065

REACTIONS (4)
  - Platelet count decreased [Unknown]
  - Infection [Unknown]
  - Petechiae [Unknown]
  - Inappropriate schedule of product administration [Unknown]
